FAERS Safety Report 8955118 (Version 3)
Quarter: 2013Q2

REPORT INFORMATION
  Report Type: Spontaneous
  Country: US (occurrence: US)
  Receive Date: 20121210
  Receipt Date: 20130524
  Transmission Date: 20140414
  Serious: Yes (Hospitalization)
  Sender: FDA-Public Use
  Company Number: US-BIOGENIDEC-2012BI057263

PATIENT
  Age: 64 Year
  Sex: Female

DRUGS (1)
  1. TYSABRI [Suspect]
     Indication: MULTIPLE SCLEROSIS
     Route: 042
     Dates: start: 20120328

REACTIONS (7)
  - Cardiac arrest [Recovered/Resolved]
  - Vomiting [Recovered/Resolved]
  - Headache [Recovered/Resolved]
  - Malaise [Recovered/Resolved]
  - Infection [Not Recovered/Not Resolved]
  - Influenza [Recovered/Resolved]
  - Multiple sclerosis [Unknown]
